FAERS Safety Report 6824018-4 (Version None)
Quarter: 2010Q3

REPORT INFORMATION
  Report Type: 
  Country: None (occurrence: None)
  Receive Date: 20100708
  Receipt Date: 20061130
  Transmission Date: 20110219
  Serious: No
  Sender: FDA-Public Use
  Company Number: US-PFIZER INC-2006114051

PATIENT
  Sex: Female
  Weight: 67.13 kg

DRUGS (4)
  1. CHANTIX [Suspect]
     Indication: SMOKING CESSATION THERAPY
     Dates: start: 20060909, end: 20060913
  2. DECONGESTANT [Concomitant]
     Dates: end: 20060101
  3. ALBUTEROL [Concomitant]
     Route: 050
     Dates: end: 20060101
  4. ALBUTEROL [Concomitant]
     Route: 055
     Dates: end: 20060101

REACTIONS (1)
  - BREAST PAIN [None]
